FAERS Safety Report 4433379-5 (Version None)
Quarter: 2004Q3

REPORT INFORMATION
  Report Type: 
  Country: None (occurrence: None)
  Receive Date: 20040824
  Receipt Date: 20040811
  Transmission Date: 20050211
  Serious: Yes (Hospitalization)
  Sender: FDA-Public Use
  Company Number: 2004CG01597

PATIENT
  Age: 66 Year
  Sex: Male

DRUGS (26)
  1. MERONEM [Suspect]
     Dates: start: 20040621, end: 20040709
  2. CORDARONE [Suspect]
     Dates: start: 20040514, end: 20040715
  3. ERYTHROCINE [Suspect]
     Dates: start: 20040705, end: 20040706
  4. LAROXYL [Suspect]
     Dates: start: 20040514, end: 20040715
  5. PERFALGAN [Suspect]
     Dates: start: 20040701, end: 20040711
  6. OMEPRAZOLE [Concomitant]
  7. BRICANYL [Concomitant]
  8. ISEPALLINE [Concomitant]
  9. TIENAM [Concomitant]
  10. GENTAMICIN [Concomitant]
  11. AMIKACIN [Concomitant]
  12. TRIFLUCAN [Concomitant]
  13. VANCOMYCIN [Concomitant]
  14. TAZOCILLINE [Concomitant]
  15. CANCIDAS [Concomitant]
  16. LEVOPHED [Concomitant]
  17. DOPAMINE HCL [Concomitant]
  18. ORGARAN [Concomitant]
  19. SURBRONC [Concomitant]
  20. ATARAX [Concomitant]
  21. ARANESP [Concomitant]
  22. LASIX [Concomitant]
  23. VENOFER [Concomitant]
  24. SOPHIDONE [Concomitant]
  25. RIVOTRIL [Concomitant]
  26. ATROVENT [Concomitant]

REACTIONS (14)
  - ANAEMIA [None]
  - AORTIC VALVE REPLACEMENT [None]
  - ARRHYTHMIA [None]
  - ASPERGILLOSIS [None]
  - DRUG INEFFECTIVE [None]
  - GASTROINTESTINAL HAEMORRHAGE [None]
  - HAEMODYNAMIC INSTABILITY [None]
  - HAEMOPTYSIS [None]
  - HEPATITIS [None]
  - LUNG INFECTION [None]
  - MULTI-ORGAN FAILURE [None]
  - PSEUDOMONAS INFECTION [None]
  - SEPSIS [None]
  - SUPERINFECTION [None]
